FAERS Safety Report 5446427-0 (Version None)
Quarter: 2007Q3

REPORT INFORMATION
  Report Type: 
  Country: None (occurrence: None)
  Receive Date: 20070907
  Receipt Date: 20070831
  Transmission Date: 20080115
  Serious: Yes (Hospitalization)
  Sender: FDA-Public Use
  Company Number: BR-ASTRAZENECA-2007UW20843

PATIENT
  Age: 38 Year
  Sex: Male
  Weight: 76 kg

DRUGS (1)
  1. CRESTOR [Suspect]
     Indication: HYPERCHOLESTEROLAEMIA
     Route: 048
     Dates: start: 20070831, end: 20070831

REACTIONS (4)
  - ABDOMINAL PAIN [None]
  - ASTHENIA [None]
  - CONFUSIONAL STATE [None]
  - MALAISE [None]
